FAERS Safety Report 26048237 (Version 1)
Quarter: 2025Q4

REPORT INFORMATION
  Report Type: Spontaneous
  Country: US (occurrence: None)
  Receive Date: 20251114
  Receipt Date: 20251114
  Transmission Date: 20260118
  Serious: Yes (Life-Threatening, Disabling, Other)
  Sender: FDA-CTU
  Company Number: None

PATIENT
  Age: 68 Year
  Sex: Female
  Weight: 81.9 kg

DRUGS (10)
  1. DULOXETINE [Suspect]
     Active Substance: DULOXETINE
     Indication: Depression
     Route: 048
     Dates: end: 20011001
  2. ESCITALOPRAM [Suspect]
     Active Substance: ESCITALOPRAM OXALATE
  3. FLUOXETINE [Suspect]
     Active Substance: FLUOXETINE HYDROCHLORIDE
  4. ESCITALOPRAM [Suspect]
     Active Substance: ESCITALOPRAM OXALATE
  5. MIRTAZAPINE [Suspect]
     Active Substance: MIRTAZAPINE
  6. BUPROPION [Concomitant]
     Active Substance: BUPROPION
  7. SERTRALINE [Concomitant]
     Active Substance: SERTRALINE HYDROCHLORIDE
  8. TRAZODONE [Concomitant]
     Active Substance: TRAZODONE HYDROCHLORIDE
  9. VENLAFAXINE [Concomitant]
     Active Substance: VENLAFAXINE HYDROCHLORIDE
  10. PREGABALIN [Concomitant]
     Active Substance: PREGABALIN

REACTIONS (21)
  - Hallucination, auditory [None]
  - Dizziness [None]
  - Coordination abnormal [None]
  - Nausea [None]
  - Fatigue [None]
  - Serotonin syndrome [None]
  - Tremor [None]
  - Seizure [None]
  - Suicidal ideation [None]
  - Hypersensitivity [None]
  - Drug intolerance [None]
  - Skin exfoliation [None]
  - Fall [None]
  - Paraesthesia [None]
  - Bedridden [None]
  - Hallucination, visual [None]
  - Homicidal ideation [None]
  - Swelling face [None]
  - Myalgia [None]
  - Mood altered [None]
  - Claustrophobia [None]

NARRATIVE: CASE EVENT DATE: 19980101
